FAERS Safety Report 21220378 (Version 1)
Quarter: 2022Q3

REPORT INFORMATION
  Report Type: Spontaneous
  Country: US (occurrence: None)
  Receive Date: 20220817
  Receipt Date: 20220817
  Transmission Date: 20221027
  Serious: Yes (Other)
  Sender: FDA-Public Use
  Company Number: US-ROCHE-3161656

PATIENT
  Age: 36 Year
  Sex: Male

DRUGS (3)
  1. OCREVUS [Suspect]
     Active Substance: OCRELIZUMAB
     Indication: Product used for unknown indication
     Dosage: FIRST DOSE
     Route: 065
     Dates: start: 201903
  2. OCREVUS [Suspect]
     Active Substance: OCRELIZUMAB
     Dosage: LAST DOSE
     Route: 065
     Dates: start: 202003
  3. RITUXIMAB [Suspect]
     Active Substance: RITUXIMAB
     Indication: Product used for unknown indication
     Route: 041

REACTIONS (3)
  - Diarrhoea haemorrhagic [Unknown]
  - Colitis ulcerative [Unknown]
  - B-lymphocyte count increased [Unknown]

NARRATIVE: CASE EVENT DATE: 20200501
